FAERS Safety Report 7252382-3 (Version None)
Quarter: 2011Q1

REPORT INFORMATION
  Report Type: 
  Country: None (occurrence: None)
  Receive Date: 20110129
  Receipt Date: 20100115
  Transmission Date: 20110831
  Serious: No
  Sender: FDA-Public Use
  Company Number: US-ABBOTT-10P-163-0619667-00

PATIENT
  Sex: Female
  Weight: 78.088 kg

DRUGS (5)
  1. HUMIRA [Suspect]
     Indication: CROHN'S DISEASE
     Dosage: DAY 1
     Dates: start: 20091215, end: 20091215
  2. HUMIRA [Suspect]
     Dates: start: 20091229, end: 20091229
  3. TINDAMEX [Concomitant]
     Indication: CROHN'S DISEASE
     Route: 048
  4. HUMIRA [Suspect]
     Dates: start: 20100112
  5. SYNTHROID [Concomitant]
     Indication: PRODUCT USED FOR UNKNOWN INDICATION

REACTIONS (10)
  - BACK PAIN [None]
  - PELVIC DISCOMFORT [None]
  - WEIGHT INCREASED [None]
  - ARTHRALGIA [None]
  - SWELLING FACE [None]
  - HEADACHE [None]
  - JOINT SWELLING [None]
  - ABDOMINAL DISTENSION [None]
  - FEELING ABNORMAL [None]
  - ANORECTAL DISCOMFORT [None]
